FAERS Safety Report 7956857-0 (Version None)
Quarter: 2011Q4

REPORT INFORMATION
  Report Type: 
  Country: None (occurrence: None)
  Receive Date: 20111205
  Receipt Date: 20111129
  Transmission Date: 20120403
  Serious: Yes (Other)
  Sender: FDA-Public Use
  Company Number: US-AMGEN-KDL284490

PATIENT
  Age: 32 Year
  Sex: Female

DRUGS (5)
  1. PREDNISONE [Concomitant]
     Dosage: 5 MG, QD
  2. PRILOSEC [Concomitant]
     Dosage: UNK UNK, QD
     Route: 048
  3. ENBREL [Suspect]
     Indication: RHEUMATOID ARTHRITIS
     Dosage: 50 MG, QWK
     Route: 058
     Dates: start: 20000601
  4. MOTRIN [Concomitant]
     Dosage: UNK UNK, PRN
  5. ENBREL [Suspect]
     Dosage: 25 MG, 2 TIMES/WK

REACTIONS (11)
  - BACK PAIN [None]
  - ARTHRALGIA [None]
  - JOINT SWELLING [None]
  - INJECTION SITE PRURITUS [None]
  - JOINT STIFFNESS [None]
  - RHEUMATOID ARTHRITIS [None]
  - HYPERTENSION [None]
  - INJECTION SITE PAIN [None]
  - INJECTION SITE REACTION [None]
  - PRE-ECLAMPSIA [None]
  - INJECTION SITE SWELLING [None]
